FAERS Safety Report 8477279-2 (Version None)
Quarter: 2012Q2

REPORT INFORMATION
  Report Type: 
  Country: None (occurrence: None)
  Receive Date: 20120629
  Receipt Date: 20120619
  Transmission Date: 20120825
  Serious: Yes (Hospitalization, Other)
  Sender: FDA-Public Use
  Company Number: FR-JNJFOC-20120610486

PATIENT
  Age: 67 Year
  Sex: Female

DRUGS (13)
  1. REMICADE [Suspect]
     Indication: RHEUMATOID ARTHRITIS
     Route: 042
     Dates: start: 20020101, end: 20100601
  2. ZOLPIDEM [Concomitant]
     Route: 065
  3. ORENCIA [Suspect]
     Route: 065
     Dates: start: 20120323, end: 20120323
  4. INDAPAMIDE [Concomitant]
     Route: 065
  5. FLECAINIDE ACETATE [Concomitant]
     Route: 065
  6. LEVOTHYROXINE SODIUM [Concomitant]
     Route: 065
  7. PREDNISONE [Concomitant]
     Route: 065
  8. METHOTREXATE [Suspect]
     Indication: RHEUMATOID ARTHRITIS
     Route: 048
     Dates: start: 19980101, end: 20120401
  9. ORENCIA [Suspect]
     Indication: RHEUMATOID ARTHRITIS
     Route: 065
     Dates: start: 20101115
  10. PERINDOPRIL ERBUMINE [Concomitant]
     Route: 065
  11. ENBREL [Suspect]
     Indication: RHEUMATOID ARTHRITIS
     Route: 058
     Dates: start: 20100601, end: 20101001
  12. PREDNISONE TAB [Concomitant]
     Indication: RHEUMATOID ARTHRITIS
     Route: 065
  13. PANTOPRAZOLE [Concomitant]
     Route: 065

REACTIONS (6)
  - GOITRE [None]
  - RIGHT VENTRICULAR FAILURE [None]
  - CEREBROVASCULAR ACCIDENT [None]
  - LUNG DISORDER [None]
  - KNEE ARTHROPLASTY [None]
  - ACUTE MYELOID LEUKAEMIA [None]
